FAERS Safety Report 9812931 (Version 1)
Quarter: 2014Q1

REPORT INFORMATION
  Report Type: Spontaneous
  Country: US (occurrence: None)
  Receive Date: 20140109
  Receipt Date: 20140109
  Transmission Date: 20141002
  Serious: No
  Sender: FDA-Public Use
  Company Number: None

PATIENT
  Age: 8 Year
  Sex: Male
  Weight: 32.21 kg

DRUGS (1)
  1. TAMIFLU [Suspect]
     Indication: INFLUENZA B VIRUS TEST POSITIVE
     Dosage: 1 DOSE 10 ML TWICE DAILY

REACTIONS (2)
  - Dyskinesia [None]
  - Abnormal behaviour [None]
